FAERS Safety Report 5990858-7 (Version None)
Quarter: 2008Q4

REPORT INFORMATION
  Report Type: 
  Country: None (occurrence: None)
  Receive Date: 20081211
  Receipt Date: 20081202
  Transmission Date: 20090506
  Serious: Yes (Other)
  Sender: FDA-Public Use
  Company Number: GB-PFIZER INC-2008099817

PATIENT

DRUGS (15)
  1. CELEBREX [Suspect]
     Dosage: 100 MG, 2X/DAY
     Route: 048
     Dates: end: 20081101
  2. PROMETHAZINE [Concomitant]
     Dosage: UNK
     Route: 048
  3. ACETAMINOPHEN W/ CODEINE [Concomitant]
     Dosage: UNK
     Route: 048
  4. SENNA [Concomitant]
     Dosage: UNK
     Route: 048
  5. LACTULOSE [Concomitant]
     Dosage: 10 ML, 2X/DAY
     Route: 048
  6. MADOPAR [Concomitant]
     Dosage: 125 MG, UNK
     Route: 048
  7. QUETIAPINE [Concomitant]
     Dosage: 25 MG, UNK
     Route: 048
  8. CITALOPRAM [Concomitant]
     Dosage: 10 MG, 1X/DAY
     Route: 048
  9. FUROSEMIDE [Concomitant]
     Dosage: 40 MG, 1X/DAY
     Route: 048
  10. MOVICOL [Concomitant]
     Route: 048
  11. PROPRANOLOL [Concomitant]
     Dosage: 80 MG, 1X/DAY
     Route: 048
  12. ALVERINE CITRATE [Concomitant]
     Dosage: 120 MG, 3X/DAY
     Route: 048
  13. LANSOPRAZOLE [Concomitant]
     Dosage: 30 MG, 1X/DAY
     Route: 048
  14. MOVELAT [Concomitant]
     Route: 061
  15. HYPROMELLOSE [Concomitant]
     Dosage: UNK
     Route: 061

REACTIONS (2)
  - DYSPHAGIA [None]
  - PARKINSON'S DISEASE [None]
